FAERS Safety Report 15433435 (Version 1)
Quarter: 2018Q3

REPORT INFORMATION
  Report Type: Spontaneous
  Country: US (occurrence: US)
  Receive Date: 20180921
  Receipt Date: 20180921
  Transmission Date: 20181010
  Serious: Yes (Other)
  Sender: FDA-Public Use
  Company Number: None

PATIENT
  Age: 33 Year
  Sex: Male
  Weight: 92.25 kg

DRUGS (1)
  1. FINASTERIDE. [Suspect]
     Active Substance: FINASTERIDE
     Indication: ALOPECIA
     Dosage: ?          QUANTITY:8 TABLET(S);OTHER FREQUENCY:1/4 DOSE PER DAY;?
     Route: 048
     Dates: start: 20180914, end: 20180914

REACTIONS (5)
  - Erectile dysfunction [None]
  - Fatigue [None]
  - Heart rate increased [None]
  - Anxiety [None]
  - Testicular pain [None]

NARRATIVE: CASE EVENT DATE: 20180914
